FAERS Safety Report 12109321 (Version 5)
Quarter: 2017Q1

REPORT INFORMATION
  Report Type: Spontaneous
  Country: US (occurrence: US)
  Receive Date: 20160224
  Receipt Date: 20170123
  Transmission Date: 20170428
  Serious: No
  Sender: FDA-Public Use
  Company Number: US-PFIZER INC-2016092842

PATIENT
  Age: 81 Year
  Sex: Female
  Weight: 62.59 kg

DRUGS (4)
  1. IBRANCE [Suspect]
     Active Substance: PALBOCICLIB
     Dosage: 125 MG, CYCLIC (DAYS 1-21 Q28 DAYS)
     Route: 048
     Dates: start: 20160125
  2. IBRANCE [Suspect]
     Active Substance: PALBOCICLIB
     Dosage: 125 MG, CYCLIC [D1-D21 Q28D]
     Route: 048
     Dates: start: 20160125
  3. IBRANCE [Suspect]
     Active Substance: PALBOCICLIB
     Dosage: 125 MG, UNK (DAYS 1-21 Q28 DAYS)
     Route: 048
     Dates: start: 20160125
  4. IBRANCE [Suspect]
     Active Substance: PALBOCICLIB
     Indication: BREAST CANCER METASTATIC
     Dosage: 125 MG, CYCLIC (DAY 1-DAY 21 EVERY 25 DAYS)
     Route: 048
     Dates: start: 20160125

REACTIONS (4)
  - Abdominal pain upper [Unknown]
  - Weight decreased [Unknown]
  - Somnolence [Unknown]
  - Asthenia [Unknown]

NARRATIVE: CASE EVENT DATE: 20160211
